FAERS Safety Report 6132768-0 (Version None)
Quarter: 2009Q1

REPORT INFORMATION
  Report Type: 
  Country: None (occurrence: None)
  Receive Date: 20090326
  Receipt Date: 20090316
  Transmission Date: 20090719
  Serious: Yes (Other)
  Sender: FDA-Public Use
  Company Number: GB-TEVA-188694ISR

PATIENT
  Age: 2 Month
  Sex: Male

DRUGS (2)
  1. PREDNISOLONE [Suspect]
     Indication: XANTHOGRANULOMA
  2. VINBLASTINE [Suspect]
     Indication: XANTHOGRANULOMA

REACTIONS (6)
  - ATELECTASIS [None]
  - CENTRAL NERVOUS SYSTEM LESION [None]
  - HEPATIC NEOPLASM [None]
  - IRRITABILITY [None]
  - LUNG NEOPLASM [None]
  - SKIN LESION [None]
